FAERS Safety Report 4330179-1 (Version None)
Quarter: 2004Q1

REPORT INFORMATION
  Report Type: 
  Country: None (occurrence: None)
  Receive Date: 20040329
  Receipt Date: 20040312
  Transmission Date: 20041129
  Serious: Yes (Hospitalization)
  Sender: FDA-Public Use
  Company Number: 2001AP03486

PATIENT
  Age: 52 Year
  Sex: Female
  Weight: 76.2043 kg

DRUGS (4)
  1. SEROQUEL [Suspect]
     Indication: SCHIZOPHRENIA
     Dosage: 400 MG ONCE PO
     Route: 048
     Dates: start: 20010424, end: 20010424
  2. SEROQUEL [Suspect]
     Indication: SCHIZOPHRENIA
     Dosage: 200 MG BID PO
     Route: 048
     Dates: start: 20010326, end: 20010424
  3. PREMARIN [Concomitant]
  4. DEPIXOL [Concomitant]

REACTIONS (4)
  - BLOOD PRESSURE INCREASED [None]
  - PARALYSIS [None]
  - PSYCHOTIC DISORDER [None]
  - TACHYCARDIA [None]
